FAERS Safety Report 11674560 (Version 1)
Quarter: 2015Q4

REPORT INFORMATION
  Report Type: Spontaneous
  Country: US (occurrence: US)
  Receive Date: 20151027
  Receipt Date: 20151027
  Transmission Date: 20160304
  Serious: No
  Sender: FDA-Public Use
  Company Number: US-ELI_LILLY_AND_COMPANY-US201008002916

PATIENT
  Sex: Female

DRUGS (3)
  1. KONSYL [Concomitant]
  2. METAMUCIL [Concomitant]
     Active Substance: PLANTAGO SEED
  3. FORTEO [Suspect]
     Active Substance: TERIPARATIDE
     Indication: OSTEOPOROSIS
     Dosage: 20 UG, DAILY (1/D)

REACTIONS (2)
  - Gastritis [Unknown]
  - Irritable bowel syndrome [Unknown]
